FAERS Safety Report 5789407-8 (Version None)
Quarter: 2008Q2

REPORT INFORMATION
  Report Type: 
  Country: None (occurrence: None)
  Receive Date: 20080626
  Receipt Date: 20080619
  Transmission Date: 20081010
  Serious: Yes (Hospitalization)
  Sender: FDA-Public Use
  Company Number: JP-AVENTIS-200811895JP

PATIENT
  Age: 74 Year
  Sex: Female

DRUGS (1)
  1. CLEXANE [Suspect]
     Route: 058
     Dates: start: 20080606, end: 20080608

REACTIONS (2)
  - CARDIAC FAILURE CONGESTIVE [None]
  - HEPARIN-INDUCED THROMBOCYTOPENIA [None]
